FAERS Safety Report 11763507 (Version 1)
Quarter: 2015Q4

REPORT INFORMATION
  Report Type: Spontaneous
  Country: US (occurrence: US)
  Receive Date: 20151120
  Receipt Date: 20151120
  Transmission Date: 20160304
  Serious: No
  Sender: FDA-Public Use
  Company Number: US-ELI_LILLY_AND_COMPANY-US201303009999

PATIENT
  Sex: Female

DRUGS (1)
  1. FORTEO [Suspect]
     Active Substance: TERIPARATIDE
     Indication: OSTEOPOROSIS
     Dosage: UNK UNK, QD
     Dates: start: 20130313

REACTIONS (14)
  - Pain in extremity [Unknown]
  - Headache [Unknown]
  - Myalgia [Unknown]
  - Arthritis [Unknown]
  - Skin warm [Unknown]
  - Fibromyalgia [Unknown]
  - Back pain [Unknown]
  - Gait disturbance [Unknown]
  - Constipation [Unknown]
  - Nausea [Unknown]
  - Musculoskeletal discomfort [Unknown]
  - Erythema [Unknown]
  - Dysstasia [Unknown]
  - Pain [Unknown]
